FAERS Safety Report 6089152-8 (Version None)
Quarter: 2009Q1

REPORT INFORMATION
  Report Type: 
  Country: None (occurrence: None)
  Receive Date: 20090224
  Receipt Date: 20090216
  Transmission Date: 20090719
  Serious: Yes (Death, Life-Threatening)
  Sender: FDA-Public Use
  Company Number: DE-TEVA-185711ISR

PATIENT
  Age: 64 Year
  Sex: Female
  Weight: 76 kg

DRUGS (3)
  1. PACLITAXEL [Suspect]
     Indication: BREAST CANCER FEMALE
     Route: 042
     Dates: start: 20081211, end: 20081211
  2. PACLITAXEL [Suspect]
     Route: 042
     Dates: start: 20081211, end: 20081211
  3. DEXTROSE 5% [Suspect]
     Indication: BREAST CANCER FEMALE
     Route: 042
     Dates: start: 20081211, end: 20081211

REACTIONS (2)
  - CARDIAC ARREST [None]
  - SHOCK [None]
